FAERS Safety Report 17325473 (Version 1)
Quarter: 2020Q1

REPORT INFORMATION
  Report Type: Spontaneous
  Country: GB (occurrence: GB)
  Receive Date: 20200127
  Receipt Date: 20200127
  Transmission Date: 20200409
  Serious: Yes (Other)
  Sender: FDA-Public Use
  Company Number: GB-TEVA-2020-GB-1173634

PATIENT
  Age: 51 Year
  Sex: Female
  Weight: 124 kg

DRUGS (6)
  1. TURMERIC [Concomitant]
     Active Substance: HERBALS\TURMERIC
  2. FEXOFENADINE [Concomitant]
     Active Substance: FEXOFENADINE HYDROCHLORIDE
  3. DOXYCYCLINE. [Suspect]
     Active Substance: DOXYCYCLINE
     Indication: LOWER RESPIRATORY TRACT INFECTION
     Dosage: 100 MG
     Route: 048
     Dates: start: 20191230, end: 20191231
  4. ZUMENON [Concomitant]
     Active Substance: ESTRADIOL
  5. CITALOPRAM [Concomitant]
     Active Substance: CITALOPRAM HYDROBROMIDE
  6. BIOTIN [Concomitant]
     Active Substance: BIOTIN

REACTIONS (2)
  - Rash macular [Not Recovered/Not Resolved]
  - Blister [Not Recovered/Not Resolved]

NARRATIVE: CASE EVENT DATE: 20191231
